FAERS Safety Report 5724381-1 (Version None)
Quarter: 2008Q2

REPORT INFORMATION
  Report Type: 
  Country: None (occurrence: None)
  Receive Date: 20080429
  Receipt Date: 20080411
  Transmission Date: 20081010
  Serious: Yes (Death)
  Sender: FDA-Public Use
  Company Number: S08-DEN-00939-01

PATIENT
  Age: 36 Year
  Sex: Female

DRUGS (6)
  1. AKARIN (CITALOPRAM) [Suspect]
     Indication: DEPRESSION
     Dosage: 30 MG QD;PO
     Route: 048
     Dates: start: 20010601, end: 20030101
  2. AKARIN (CITALOPRAM) [Suspect]
     Indication: DEPRESSION
     Dosage: 60 MG QD;PO
     Route: 048
     Dates: start: 20030101
  3. SEROQUEL [Suspect]
     Dates: start: 20030101
  4. VALPROATE SODIUM [Suspect]
     Dosage: 1000 MG QD;PO
     Route: 048
     Dates: start: 20030101
  5. LAMICTAL [Suspect]
     Dosage: 350 MG QD;PO
     Route: 048
     Dates: start: 20030101
  6. MINULET (FEMODENE) [Suspect]
     Indication: ORAL CONTRACEPTION
     Dosage: 1 TABLET QD;PO
     Route: 048
     Dates: start: 20030101

REACTIONS (26)
  - ANTICONVULSANT DRUG LEVEL DECREASED [None]
  - AORTIC ARTERIOSCLEROSIS [None]
  - AORTIC VALVE SCLEROSIS [None]
  - ARTERIOSCLEROSIS CORONARY ARTERY [None]
  - BACTERIAL INFECTION [None]
  - CARDIAC ARREST [None]
  - CEREBROSPINAL FLUID RETENTION [None]
  - CHEST DISCOMFORT [None]
  - CONJUNCTIVAL HAEMORRHAGE [None]
  - DIZZINESS [None]
  - DRUG INTERACTION [None]
  - DRUG TOXICITY [None]
  - DYSPNOEA [None]
  - ENCEPHALITIS [None]
  - EPILEPSY [None]
  - FALL [None]
  - HEPATOMEGALY [None]
  - LIMB INJURY [None]
  - MALAISE [None]
  - MUSCLE HAEMORRHAGE [None]
  - PALPITATIONS [None]
  - PULMONARY HAEMORRHAGE [None]
  - PULMONARY OEDEMA [None]
  - RENAL DISORDER [None]
  - TACHYCARDIA [None]
  - THYROIDITIS [None]
